FAERS Safety Report 7114755-9 (Version None)
Quarter: 2010Q4

REPORT INFORMATION
  Report Type: 
  Country: None (occurrence: None)
  Receive Date: 20101122
  Receipt Date: 20101012
  Transmission Date: 20110411
  Serious: No
  Sender: FDA-Public Use
  Company Number: US-BIOGENIDEC-2010BI032603

PATIENT
  Age: 50 Year
  Sex: Female

DRUGS (1)
  1. TYSABRI [Suspect]
     Indication: MULTIPLE SCLEROSIS
     Route: 042
     Dates: start: 20100803, end: 20100803

REACTIONS (5)
  - DEPRESSED MOOD [None]
  - EMOTIONAL DISTRESS [None]
  - MALAISE [None]
  - MASS [None]
  - VISION BLURRED [None]
